FAERS Safety Report 21871886 (Version 1)
Quarter: 2023Q1

REPORT INFORMATION
  Report Type: Report from Study
  Country: AR (occurrence: AR)
  Receive Date: 20230117
  Receipt Date: 20230117
  Transmission Date: 20230417
  Serious: Yes (Life-Threatening)
  Sender: FDA-Public Use
  Company Number: AR-002147023-NVSC2023AR009586

PATIENT
  Sex: Male

DRUGS (2)
  1. ENTRESTO [Suspect]
     Active Substance: SACUBITRIL\VALSARTAN
     Indication: Cardiac disorder
     Dosage: 100 MG, BID, (THROUGH THE MOUTH)
     Route: 048
     Dates: start: 2020
  2. ENTRESTO [Suspect]
     Active Substance: SACUBITRIL\VALSARTAN
     Indication: Blood pressure abnormal

REACTIONS (3)
  - Cardiac dysfunction [Unknown]
  - Arthralgia [Unknown]
  - Dysstasia [Unknown]

NARRATIVE: CASE EVENT DATE: 20220101
